FAERS Safety Report 22891240 (Version 7)
Quarter: 2023Q4

REPORT INFORMATION
  Report Type: Spontaneous
  Country: CO (occurrence: CO)
  Receive Date: 20230901
  Receipt Date: 20231103
  Transmission Date: 20240110
  Serious: Yes (Other)
  Sender: FDA-Public Use
  Company Number: CO-PFIZER INC-PV202300145361

PATIENT
  Age: 76 Year
  Sex: Male

DRUGS (1)
  1. ENBREL [Suspect]
     Active Substance: ETANERCEPT
     Indication: Psoriasis
     Dosage: 50 MG, WEEKLY
     Route: 058
     Dates: start: 202212

REACTIONS (7)
  - Choking [Not Recovered/Not Resolved]
  - Condition aggravated [Not Recovered/Not Resolved]
  - Device occlusion [Unknown]
  - Needle issue [Unknown]
  - Drug dose omission by device [Unknown]
  - Accidental exposure to product [Unknown]
  - Exposure via skin contact [Unknown]

NARRATIVE: CASE EVENT DATE: 20230818
